FAERS Safety Report 10150029 (Version 2)
Quarter: 2014Q2

REPORT INFORMATION
  Report Type: Report from Study
  Country: US (occurrence: US)
  Receive Date: 20140502
  Receipt Date: 20140513
  Transmission Date: 20141212
  Serious: Yes (Hospitalization, Other)
  Sender: FDA-Public Use
  Company Number: US-009507513-1404USA015305

PATIENT
  Age: 68 Year
  Sex: Male
  Weight: 117.23 kg

DRUGS (4)
  1. SIMVASTATIN [Suspect]
     Indication: ACUTE CORONARY SYNDROME
     Dosage: UNK
     Route: 048
     Dates: start: 20060630
  2. METOPROLOL [Concomitant]
     Dosage: TOTAL DAILY DOSE 100 (UNITS NOT PROVIDED)
     Route: 048
     Dates: start: 20060620
  3. HYDROCHLOROTHIAZIDE (+) TRIAMTERENE [Concomitant]
     Dosage: TOTAL DAILY DOSE: 37.5MG/25MG
     Route: 048
     Dates: start: 20000101
  4. ASPIRIN [Concomitant]
     Dosage: TOTAL DAILY DOSE: 325 MG
     Route: 048
     Dates: start: 20060620

REACTIONS (1)
  - Cholecystitis chronic [Recovered/Resolved]
